FAERS Safety Report 6736577-0 (Version None)
Quarter: 2010Q2

REPORT INFORMATION
  Report Type: 
  Country: None (occurrence: None)
  Receive Date: 20100521
  Receipt Date: 20100511
  Transmission Date: 20101027
  Serious: Yes (Hospitalization)
  Sender: FDA-Public Use
  Company Number: AU-ABBOTT-10P-008-0641749-03

PATIENT
  Sex: Female
  Weight: 45 kg

DRUGS (7)
  1. HUMIRA [Suspect]
     Indication: CROHN'S DISEASE
     Route: 058
     Dates: start: 20080108
  2. MESALAZINE [Concomitant]
     Indication: CROHN'S DISEASE
     Dates: start: 20051101
  3. NOVASONE [Concomitant]
     Indication: PSORIASIS
     Dosage: APPLY AT NIGHT TO FEET
     Dates: start: 20080201
  4. ORTHO [Concomitant]
     Indication: CONTRACEPTION
     Dosage: AS PRESCRIBED BY GP
     Dates: start: 20090201
  5. PREDNISOLONE [Concomitant]
     Indication: CROHN'S DISEASE
     Dates: start: 20090712
  6. ESOMEPRAZOLE [Concomitant]
     Indication: GASTROOESOPHAGEAL REFLUX DISEASE
     Dates: start: 20090708
  7. PARIET [Concomitant]
     Indication: OESOPHAGITIS
     Dates: start: 20100331

REACTIONS (1)
  - CROHN'S DISEASE [None]
